FAERS Safety Report 5431990-6 (Version None)
Quarter: 2007Q3

REPORT INFORMATION
  Report Type: 
  Country: None (occurrence: None)
  Receive Date: 20070830
  Receipt Date: 20070822
  Transmission Date: 20080115
  Serious: Yes (Hospitalization)
  Sender: FDA-Public Use
  Company Number: FR-PFIZER INC-2007069883

PATIENT
  Sex: Female

DRUGS (2)
  1. TRIFLUCAN [Suspect]
     Indication: ORAL CANDIDIASIS
     Route: 048
  2. COUMADIN [Interacting]
     Indication: INTERNATIONAL NORMALISED RATIO

REACTIONS (3)
  - DRUG INTERACTION [None]
  - INTERNATIONAL NORMALISED RATIO INCREASED [None]
  - MALAISE [None]
